FAERS Safety Report 5252104-1 (Version None)
Quarter: 2007Q1

REPORT INFORMATION
  Report Type: 
  Country: None (occurrence: None)
  Receive Date: 20070220
  Receipt Date: 20070202
  Transmission Date: 20070707
  Serious: Yes (Hospitalization)
  Sender: FDA-Public Use
  Company Number: THYM-11293

PATIENT
  Age: 44 Year
  Sex: Male

DRUGS (11)
  1. THYMOGLOBULIN [Suspect]
     Indication: RENAL TRANSPLANT
     Dosage: 75 MG QD IV
     Route: 042
     Dates: start: 20060118, end: 20060118
  2. THYMOGLOBULIN [Suspect]
     Indication: RENAL TRANSPLANT
     Dates: start: 20060119, end: 20060125
  3. TACROLIMUS [Suspect]
     Indication: IMMUNOSUPPRESSION
     Dosage: 0.1 MG QD PO
     Route: 048
  4. TACROLIMUS [Suspect]
     Indication: IMMUNOSUPPRESSION
     Dates: end: 20060319
  5. BACTRIM [Concomitant]
  6. VALACYCLOVIR HCL [Concomitant]
  7. HEPARIN [Concomitant]
  8. ASPIRIN [Concomitant]
  9. CELLCEPT [Concomitant]
  10. SOLU-MEDROL [Concomitant]
  11. STEROIDS (PREDNISONE OR PREDNISOLONE) [Concomitant]

REACTIONS (1)
  - BLOOD CREATININE INCREASED [None]
